FAERS Safety Report 10051277 (Version 1)
Quarter: 2014Q2

REPORT INFORMATION
  Report Type: Report from Study
  Country: US (occurrence: US)
  Receive Date: 20140401
  Receipt Date: 20140401
  Transmission Date: 20141212
  Serious: Yes (Hospitalization, Other)
  Sender: FDA-Public Use
  Company Number: US-BAXTER-2014BAX015811

PATIENT
  Age: 15 Year
  Sex: Male
  Weight: 88 kg

DRUGS (22)
  1. CYCLOPHOSPHAMIDE FOR INJECTION, USP [Suspect]
     Indication: NEOPLASM
     Route: 042
     Dates: start: 20131213, end: 20131217
  2. CYCLOPHOSPHAMIDE FOR INJECTION, USP [Suspect]
     Route: 042
  3. CRIZOTINIB [Suspect]
     Indication: NEOPLASM
     Dosage: 215 MG/M2/DOSE - 435MG - 17.4 ML
     Route: 048
     Dates: start: 20131212, end: 20131220
  4. CRIZOTINIB [Suspect]
     Dosage: 215 MG/M2/DOSE-435 MG
     Route: 048
  5. CRIZOTINIB [Suspect]
     Dosage: 215 MG/M2/DOSE - 435MG - 17.4 ML
     Route: 045
     Dates: start: 20131212, end: 20131220
  6. CRIZOTINIB [Suspect]
     Dosage: 165 MG/M2 = 13.2 ML = 330 MG
     Route: 065
     Dates: start: 20131227, end: 20140101
  7. TOPOTECAN HYDROCHLORIDE [Suspect]
     Indication: NEOPLASM
     Route: 042
     Dates: start: 20131213, end: 20131217
  8. TOPOTECAN HYDROCHLORIDE [Suspect]
     Route: 042
  9. LORAZEPAM [Suspect]
     Indication: ANTIEMETIC SUPPORTIVE CARE
     Route: 065
  10. PHENERGAN [Suspect]
     Indication: PRODUCT USED FOR UNKNOWN INDICATION
     Route: 065
  11. DEXAMETHASONE [Suspect]
     Indication: ANTIEMETIC SUPPORTIVE CARE
     Route: 065
  12. ZOFRAN [Suspect]
     Indication: ANTIEMETIC SUPPORTIVE CARE
     Route: 065
  13. DRONABINOL [Suspect]
     Indication: ANTIEMETIC SUPPORTIVE CARE
     Route: 065
  14. DIPHENHYDRAMINE HYDROCHLORIDE [Suspect]
     Indication: ANTIEMETIC SUPPORTIVE CARE
     Route: 065
  15. HYOSCINE [Suspect]
     Indication: ANTIEMETIC SUPPORTIVE CARE
     Route: 065
  16. PHENERGAN [Concomitant]
     Indication: PRODUCT USED FOR UNKNOWN INDICATION
     Route: 065
  17. DEXAMETHASONE [Concomitant]
     Indication: ANTIEMETIC SUPPORTIVE CARE
     Route: 065
  18. ZOFRAN [Concomitant]
     Indication: ANTIEMETIC SUPPORTIVE CARE
     Route: 065
  19. DRONABINOL [Concomitant]
     Indication: ANTIEMETIC SUPPORTIVE CARE
     Route: 065
  20. LORAZEPAM [Concomitant]
     Indication: ANTIEMETIC SUPPORTIVE CARE
     Route: 065
  21. DIPHENHYDRAMINE HYDROCHLORIDE [Concomitant]
     Indication: ANTIEMETIC SUPPORTIVE CARE
     Route: 065
  22. HYOSCINE [Concomitant]
     Indication: ANTIEMETIC SUPPORTIVE CARE
     Route: 065

REACTIONS (4)
  - Dehydration [Recovered/Resolved]
  - Hypoxia [Recovered/Resolved]
  - Nausea [Recovering/Resolving]
  - Diarrhoea [Recovered/Resolved]
